FAERS Safety Report 5995718-3 (Version None)
Quarter: 2008Q4

REPORT INFORMATION
  Report Type: 
  Country: None (occurrence: None)
  Receive Date: 20081212
  Receipt Date: 20080619
  Transmission Date: 20090506
  Serious: No
  Sender: FDA-Public Use
  Company Number: US-AMGEN-KDL283947

PATIENT
  Sex: Female

DRUGS (2)
  1. ENBREL [Suspect]
     Indication: RHEUMATOID ARTHRITIS
     Route: 058
     Dates: start: 20030318
  2. METHOTREXATE [Concomitant]
     Route: 048

REACTIONS (5)
  - APHTHOUS STOMATITIS [None]
  - ASTHMA [None]
  - LUNG INFECTION [None]
  - NODULE ON EXTREMITY [None]
  - RHEUMATOID ARTHRITIS [None]
